FAERS Safety Report 15784326 (Version 2)
Quarter: 2019Q1

REPORT INFORMATION
  Report Type: Spontaneous
  Country: TR (occurrence: TR)
  Receive Date: 20190103
  Receipt Date: 20190107
  Transmission Date: 20190417
  Serious: Yes (Other)
  Sender: FDA-Public Use
  Company Number: TR-REGENERON PHARMACEUTICALS, INC.-2018-50418

PATIENT

DRUGS (2)
  1. EYLEA [Suspect]
     Active Substance: AFLIBERCEPT
     Indication: RETINOPATHY HAEMORRHAGIC
     Dosage: 2 MG, SECOND INJECTION
     Route: 031
  2. EYLEA [Suspect]
     Active Substance: AFLIBERCEPT
     Indication: EXUDATIVE RETINOPATHY
     Dosage: 2 MG, FIRST INJECTION
     Route: 031

REACTIONS (7)
  - Retinopathy haemorrhagic [Unknown]
  - Retinal fibrosis [Unknown]
  - Off label use [Unknown]
  - Retinal haemorrhage [Unknown]
  - Retinal oedema [Unknown]
  - Product use in unapproved indication [Unknown]
  - Retinal cyst [Unknown]
